FAERS Safety Report 6270050-1 (Version None)
Quarter: 2009Q3

REPORT INFORMATION
  Report Type: 
  Country: None (occurrence: None)
  Receive Date: 20090716
  Receipt Date: 20090706
  Transmission Date: 20100115
  Serious: Yes (Hospitalization, Other)
  Sender: FDA-Public Use
  Company Number: US-ELI_LILLY_AND_COMPANY-US200907002469

PATIENT
  Sex: Female
  Weight: 68 kg

DRUGS (7)
  1. GEMZAR [Suspect]
     Indication: OVARIAN CANCER
     Dosage: 1420 MG, OTHER
     Route: 042
     Dates: start: 20080505, end: 20080819
  2. ASPIRIN [Concomitant]
     Dosage: 81 MG, DAILY (1/D)
     Route: 048
  3. PROCRIT [Concomitant]
  4. TRAVATAN [Concomitant]
     Dosage: UNK, DAILY (1/D)
     Route: 047
  5. GINKGO BILOBA [Concomitant]
     Dosage: 60 MG, DAILY (1/D)
     Route: 048
  6. THERAPEUTIC-M [Concomitant]
     Dosage: UNK, DAILY (1/D)
     Route: 048
  7. NORITATE [Concomitant]
     Route: 061

REACTIONS (12)
  - ANAEMIA [None]
  - CHILLS [None]
  - CHRONIC OBSTRUCTIVE PULMONARY DISEASE [None]
  - CONVULSION [None]
  - DEHYDRATION [None]
  - FATIGUE [None]
  - GASTROINTESTINAL HAEMORRHAGE [None]
  - HEADACHE [None]
  - NAUSEA [None]
  - PLEURAL EFFUSION [None]
  - PYREXIA [None]
  - RENAL IMPAIRMENT [None]
